FAERS Safety Report 4442370-4 (Version None)
Quarter: 2004Q3

REPORT INFORMATION
  Report Type: 
  Country: None (occurrence: None)
  Receive Date: 20040903
  Receipt Date: 20040721
  Transmission Date: 20050211
  Serious: Yes (Hospitalization)
  Sender: FDA-Public Use
  Company Number: 2004UW15436

PATIENT
  Age: 70 Year
  Sex: Female
  Weight: 89.8122 kg

DRUGS (3)
  1. CRESTOR [Suspect]
     Dosage: 10 MG PO
     Route: 048
  2. ALBUTEROL [Concomitant]
  3. DIOVAN [Concomitant]

REACTIONS (4)
  - ARRHYTHMIA [None]
  - DEAFNESS NEUROSENSORY [None]
  - DIZZINESS [None]
  - VOMITING [None]
